FAERS Safety Report 6641557-X (Version None)
Quarter: 2010Q1

REPORT INFORMATION
  Report Type: 
  Country: None (occurrence: None)
  Receive Date: 20100317
  Receipt Date: 20100317
  Transmission Date: 20100710
  Serious: Yes (Other)
  Sender: FDA-Public Use
  Company Number: None

PATIENT
  Age: 80 Year
  Sex: Male
  Weight: 69.3 kg

DRUGS (12)
  1. INSULIN, GLARGINE [Suspect]
     Indication: TYPE 1 DIABETES MELLITUS
     Dosage: 32 UNITS QHS SQ
     Route: 058
     Dates: start: 20091230
  2. DIGOXIN [Concomitant]
  3. NITROGLYCERIN [Concomitant]
  4. FUROSEMIDE [Concomitant]
  5. ISMN [Concomitant]
  6. METOPROLOL TARTRATE [Concomitant]
  7. LISINOPRIL [Concomitant]
  8. GLIPIZIDE [Concomitant]
  9. WARFARIN SODIUM [Concomitant]
  10. HEPARIN [Concomitant]
  11. ASPIRIN [Concomitant]
  12. DOCUSATE [Concomitant]

REACTIONS (2)
  - BLOOD GLUCOSE INCREASED [None]
  - HYPOGLYCAEMIA [None]
